FAERS Safety Report 11154871 (Version 1)
Quarter: 2015Q2

REPORT INFORMATION
  Report Type: Report from Study
  Country: US (occurrence: US)
  Receive Date: 20150602
  Receipt Date: 20150602
  Transmission Date: 20150821
  Serious: Yes (Hospitalization, Other)
  Sender: FDA-Public Use
  Company Number: US-ABBVIE-15K-163-1393881-00

PATIENT
  Age: 81 Year
  Sex: Female

DRUGS (1)
  1. HUMIRA [Suspect]
     Active Substance: ADALIMUMAB
     Indication: PSORIASIS
     Route: 065
     Dates: start: 20130910

REACTIONS (6)
  - Cardiac pacemaker insertion [Recovered/Resolved]
  - Joint effusion [Recovering/Resolving]
  - Upper limb fracture [Recovered/Resolved]
  - Fall [Unknown]
  - Ligament rupture [Recovering/Resolving]
  - Arthritis [Unknown]

NARRATIVE: CASE EVENT DATE: 201411
